FAERS Safety Report 9101727 (Version 1)
Quarter: 2013Q1

REPORT INFORMATION
  Report Type: Spontaneous
  Country: US (occurrence: US)
  Receive Date: 20130218
  Receipt Date: 20130218
  Transmission Date: 20140127
  Serious: Yes (Other)
  Sender: FDA-Public Use
  Company Number: US-ASTRAZENECA-2013SE09280

PATIENT
  Age: 51 Year
  Sex: Female
  Weight: 74.8 kg

DRUGS (25)
  1. SYMBICORT [Suspect]
     Indication: CHRONIC OBSTRUCTIVE PULMONARY DISEASE
     Dosage: 160 MCG,2 PUFFS,TWO TIMES A DAY
     Route: 055
     Dates: start: 2010
  2. SYMBICORT [Suspect]
     Indication: EMPHYSEMA
     Dosage: 160 MCG,2 PUFFS,TWO TIMES A DAY
     Route: 055
     Dates: start: 2010
  3. METOPROLOL [Suspect]
     Indication: HEART RATE INCREASED
     Route: 048
  4. PRILOSEC [Suspect]
     Indication: GASTROOESOPHAGEAL REFLUX DISEASE
     Route: 048
  5. SPIRIVA [Concomitant]
     Indication: CHRONIC OBSTRUCTIVE PULMONARY DISEASE
     Dosage: DAILY
     Route: 055
     Dates: start: 2003
  6. ASA [Concomitant]
     Route: 048
  7. NOVOLOG [Concomitant]
     Indication: DIABETES MELLITUS
     Dosage: SLIDING SCALE
     Route: 058
     Dates: start: 2012
  8. AMARYL [Concomitant]
     Indication: DIABETES MELLITUS
     Route: 048
  9. GLUCOPHAGE [Concomitant]
     Indication: DIABETES MELLITUS
     Route: 048
     Dates: start: 2004
  10. AMITRIPTYLINE [Concomitant]
     Indication: NERVOUS SYSTEM DISORDER
     Route: 048
     Dates: start: 2000
  11. DULERA [Concomitant]
  12. ZOLOFT [Concomitant]
     Indication: DEPRESSION
     Route: 048
     Dates: start: 2011
  13. NEURONTIN [Concomitant]
     Indication: LIMB DISCOMFORT
     Route: 048
     Dates: start: 2000
  14. NEURONTIN [Concomitant]
     Indication: LIMB DISCOMFORT
     Route: 048
  15. ALBUTEROL INHALER [Concomitant]
     Indication: RESPIRATORY DISORDER
     Dosage: 2 PUFFS AS REQUIRD
     Route: 055
     Dates: start: 2003
  16. ALBUTEROL INHALER [Concomitant]
     Indication: RESPIRATORY DISORDER
     Dosage: 2 PUFFS, ABOUT THREE TIMES A DAY
     Route: 055
  17. FLEXERIL [Concomitant]
     Indication: NECK PAIN
     Dosage: AS REQUIRED
     Route: 048
     Dates: start: 201204
  18. ALBUTEROL SULFATE NEBULIZER [Concomitant]
     Dosage: AS REQUIRED
     Route: 055
     Dates: start: 2003
  19. ALBUTEROL SULFATE NEBULIZER [Concomitant]
     Dosage: TWICE A DAY
     Route: 055
  20. ALBUTEROL SULFATE NEBULIZER [Concomitant]
     Dosage: OCCASIONALLY THREE TIMES A DAY
     Route: 055
  21. LOVASTATIN [Concomitant]
     Indication: BLOOD CHOLESTEROL ABNORMAL
     Route: 048
  22. PERCOCET [Concomitant]
     Indication: NECK PAIN
     Dosage: 5/325, AS REQUIRED
     Route: 048
  23. PERCOCET [Concomitant]
     Indication: NECK PAIN
     Route: 048
  24. PERCOCET [Concomitant]
     Indication: NECK PAIN
     Dosage: OCCASIONALLY ONE DURING THE DAY
     Route: 048
  25. PREDNISONE [Concomitant]

REACTIONS (7)
  - Intervertebral disc disorder [Unknown]
  - Accident at work [Unknown]
  - Oxygen saturation decreased [Unknown]
  - Nerve compression [Unknown]
  - Chronic obstructive pulmonary disease [Unknown]
  - Cough [Unknown]
  - Neck pain [Unknown]
